FAERS Safety Report 5652451-5 (Version None)
Quarter: 2008Q1

REPORT INFORMATION
  Report Type: 
  Country: None (occurrence: None)
  Receive Date: 20080305
  Receipt Date: 20080305
  Transmission Date: 20080703
  Serious: Yes (Hospitalization)
  Sender: FDA-Public Use
  Company Number: None

PATIENT
  Age: 38 Year
  Sex: Female
  Weight: 84.8226 kg

DRUGS (1)
  1. CIPROFLOXACIN [Suspect]
     Indication: URINARY TRACT INFECTION
     Dosage: 1 TABLET TWICE DAILY PO
     Route: 048
     Dates: start: 20080212, end: 20080222

REACTIONS (17)
  - ARTHRALGIA [None]
  - BACK PAIN [None]
  - BONE PAIN [None]
  - CHEST PAIN [None]
  - CONSTIPATION [None]
  - DERMATITIS ALLERGIC [None]
  - FLANK PAIN [None]
  - HAEMANGIOMA OF LIVER [None]
  - HYPERHIDROSIS [None]
  - HYSTERECTOMY [None]
  - IMPAIRED GASTRIC EMPTYING [None]
  - NEURALGIA [None]
  - PALPITATIONS [None]
  - PELVIC PAIN [None]
  - PRURITUS [None]
  - TACHYCARDIA [None]
  - VENTRICULAR EXTRASYSTOLES [None]
